FAERS Safety Report 15804617 (Version 2)
Quarter: 2019Q1

REPORT INFORMATION
  Report Type: Report from Study
  Country: US (occurrence: US)
  Receive Date: 20190109
  Receipt Date: 20190117
  Transmission Date: 20190417
  Serious: No
  Sender: FDA-Public Use
  Company Number: US-ALLERGAN-1900805US

PATIENT
  Age: 75 Year
  Sex: Female

DRUGS (2)
  1. UNSPECIFIED MEDICATIONS [Concomitant]
     Active Substance: UNSPECIFIED INGREDIENT
  2. CYCLOSPORINE 0.5MG/ML EML (9054X) [Suspect]
     Active Substance: CYCLOSPORINE
     Indication: DRY EYE
     Dosage: 2 GTT, BID
     Route: 047

REACTIONS (3)
  - Product dose omission [Unknown]
  - Intentional dose omission [Unknown]
  - Strabismus [Recovered/Resolved]

NARRATIVE: CASE EVENT DATE: 2017
